FAERS Safety Report 19239994 (Version 3)
Quarter: 2021Q2

REPORT INFORMATION
  Report Type: Report from Study
  Country: BD (occurrence: BD)
  Receive Date: 20210511
  Receipt Date: 20210616
  Transmission Date: 20210717
  Serious: Yes (Death)
  Sender: FDA-Public Use
  Company Number: NVSC2021BD105050

PATIENT
  Age: 76 Year
  Sex: Male
  Weight: 52 kg

DRUGS (1)
  1. COSENTYX [Suspect]
     Active Substance: SECUKINUMAB
     Indication: COVID-19 PNEUMONIA
     Dosage: 300 MG (150MG X 2)
     Route: 065
     Dates: start: 20210412, end: 20210413

REACTIONS (2)
  - Product use in unapproved indication [Unknown]
  - Cardiac arrest [Fatal]

NARRATIVE: CASE EVENT DATE: 20210422
